FAERS Safety Report 24669991 (Version 1)
Quarter: 2024Q4

REPORT INFORMATION
  Report Type: Spontaneous
  Country: GB (occurrence: GB)
  Receive Date: 20241127
  Receipt Date: 20241127
  Transmission Date: 20250115
  Serious: Yes (Other)
  Sender: ACCORD
  Company Number: None

PATIENT
  Age: 78 Year
  Sex: Male

DRUGS (14)
  1. SPIRONOLACTONE [Suspect]
     Active Substance: SPIRONOLACTONE
     Indication: Product used for unknown indication
  2. DIGOXIN [Suspect]
     Active Substance: DIGOXIN
     Indication: Product used for unknown indication
     Dosage: 125, ONE TO BE TAKEN EACH DAY
  3. EDOXABAN [Concomitant]
     Active Substance: EDOXABAN
     Dosage: ONE TO BE TAKEN EACH DAY
  4. OMEPRAZOLE [Concomitant]
     Active Substance: OMEPRAZOLE
     Dosage: ONE TO BE TAKEN EACH DAY
  5. FUROSEMIDE [Concomitant]
     Active Substance: FUROSEMIDE
     Dosage: ONE TO BE TAKEN TWICE DAILY
  6. CARBAMAZEPINE [Concomitant]
     Active Substance: CARBAMAZEPINE
     Dosage: TWO TO BE TAKEN THREE TIMES DAILY.
  7. CARBOCYSTEINE [Concomitant]
     Active Substance: CARBOCYSTEINE
     Dosage: THREE TIMES A DAY
  8. RAMIPRIL [Concomitant]
     Active Substance: RAMIPRIL
     Dosage: IN THE MORNING.
  9. BISOPROLOL [Concomitant]
     Active Substance: BISOPROLOL
     Dosage: ONE TO BE TAKEN IN THE MORNING.
  10. VENTOLIN [Concomitant]
     Active Substance: ALBUTEROL SULFATE
     Dosage: 100, TWO PUFFS AS REQUIRED
  11. FLUTICASONE FUROATE\UMECLIDINIUM BROMIDE\VILANTEROL TRIFENATATE [Concomitant]
     Active Substance: FLUTICASONE FUROATE\UMECLIDINIUM BROMIDE\VILANTEROL TRIFENATATE
  12. PREGABALIN [Concomitant]
     Active Substance: PREGABALIN
     Dosage: ONE TO BE TAKEN TWICE A DAY
  13. ATORVASTATIN [Concomitant]
     Active Substance: ATORVASTATIN
     Dosage: ONE TO BE TAKEN EACH DAY.
  14. BISOPROLOL [Concomitant]
     Active Substance: BISOPROLOL
     Dosage: ONE TO BE TAKEN AT NIGHT

REACTIONS (1)
  - Pemphigoid [Unknown]
